FAERS Safety Report 5210304-0 (Version None)
Quarter: 2007Q1

REPORT INFORMATION
  Report Type: 
  Country: None (occurrence: None)
  Receive Date: 20070117
  Receipt Date: 20070112
  Transmission Date: 20070707
  Serious: Yes (Other)
  Sender: FDA-Public Use
  Company Number: US-JNJFOC-20070101692

PATIENT
  Age: 86 Year
  Sex: Male

DRUGS (2)
  1. RISPERDAL [Suspect]
     Indication: MEDICATION ERROR
     Route: 048
  2. REQUIP [Suspect]
     Indication: PARKINSON'S DISEASE

REACTIONS (4)
  - COORDINATION ABNORMAL [None]
  - DIABETES MELLITUS [None]
  - DRUG DISPENSING ERROR [None]
  - FATIGUE [None]
